FAERS Safety Report 9312416 (Version 1)
Quarter: 2013Q2

REPORT INFORMATION
  Report Type: Spontaneous
  Country: US (occurrence: US)
  Receive Date: 20130528
  Receipt Date: 20130528
  Transmission Date: 20140414
  Serious: No
  Sender: FDA-Public Use
  Company Number: US-BRISTOL-MYERS SQUIBB COMPANY-18595868

PATIENT
  Age: 58 Year
  Sex: Male
  Weight: 136.05 kg

DRUGS (2)
  1. KOMBIGLYZE XR [Suspect]
     Dosage: 1DF:2.5MG/1000MG TAB
     Dates: start: 20120715, end: 20130227
  2. LANTUS [Concomitant]
     Dosage: 30MG DURING THE DAY AND 15MG AT NIGHT

REACTIONS (1)
  - Blood glucose increased [Unknown]
